FAERS Safety Report 21133754 (Version 2)
Quarter: 2022Q3

REPORT INFORMATION
  Report Type: Spontaneous
  Country: JP (occurrence: JP)
  Receive Date: 20220726
  Receipt Date: 20220805
  Transmission Date: 20221026
  Serious: Yes (Other)
  Sender: FDA-Public Use
  Company Number: JP-NOVARTISPH-NVSJ2022JP094896

PATIENT
  Age: 17 Year
  Sex: Male
  Weight: 101.4 kg

DRUGS (13)
  1. CYCLOSPORINE [Interacting]
     Active Substance: CYCLOSPORINE
     Indication: Dermatitis atopic
     Dosage: 50 MG, BID
     Route: 048
  2. CYCLOSPORINE [Interacting]
     Active Substance: CYCLOSPORINE
     Dosage: 150 MG
     Route: 048
  3. CLOBETASOL PROPIONATE [Interacting]
     Active Substance: CLOBETASOL PROPIONATE
     Indication: Dermatitis atopic
     Dosage: 6 G, QD OR BID FOR TRUNK AND EXTREMITIES, EXCEPT VULVA
     Route: 003
  4. BETAMETHASONE BUTYRATE PROPIONATE [Interacting]
     Active Substance: BETAMETHASONE BUTYRATE PROPIONATE
     Indication: Dermatitis atopic
     Dosage: 1.6 G, USED WHEN ECZEMA ON THE FACE WORSENED
     Route: 003
  5. FLUTICASONE PROPIONATE [Interacting]
     Active Substance: FLUTICASONE PROPIONATE
     Indication: Asthma
     Dosage: UNK UNK, QD
     Route: 055
  6. MONTELUKAST [Concomitant]
     Active Substance: MONTELUKAST SODIUM
     Indication: Product used for unknown indication
     Dosage: 10 MG, QD
     Route: 048
  7. DUPILUMAB [Concomitant]
     Active Substance: DUPILUMAB
     Indication: Dermatitis atopic
     Dosage: 300 MG, BIW
     Route: 065
  8. CLOSTRIDIUM BUTYRICUM SPORES STRAIN M-55 [Concomitant]
     Active Substance: CLOSTRIDIUM BUTYRICUM SPORES STRAIN M-55
     Indication: Product used for unknown indication
     Dosage: 2 DOSAGE FORM, TID
     Route: 048
  9. BEPOTASTINE BESYLATE [Concomitant]
     Active Substance: BEPOTASTINE BESYLATE
     Indication: Product used for unknown indication
     Dosage: 10 MG, BID
     Route: 048
  10. OLOPATADINE HYDROCHLORIDE [Concomitant]
     Active Substance: OLOPATADINE HYDROCHLORIDE
     Indication: Product used for unknown indication
     Dosage: 5 MG, BID
     Route: 048
  11. HYDROXYZINE HYDROCHLORIDE [Concomitant]
     Active Substance: HYDROXYZINE HYDROCHLORIDE
     Indication: Product used for unknown indication
     Dosage: 25 MG, BID
     Route: 048
  12. LOCOID [Concomitant]
     Active Substance: HYDROCORTISONE BUTYRATE
     Indication: Product used for unknown indication
     Route: 003
  13. BETAMETHASONE VALERATE [Concomitant]
     Active Substance: BETAMETHASONE VALERATE
     Indication: Dermatitis atopic
     Dosage: 10 G
     Route: 003

REACTIONS (17)
  - Cushing^s syndrome [Unknown]
  - Weight increased [Recovering/Resolving]
  - Blood cholesterol increased [Recovered/Resolved]
  - Bone density decreased [Unknown]
  - Central obesity [Unknown]
  - Cushingoid [Unknown]
  - Lipohypertrophy [Unknown]
  - Skin striae [Unknown]
  - Lichenification [Unknown]
  - Adrenal atrophy [Unknown]
  - Prurigo [Unknown]
  - Arthropathy [Unknown]
  - Drug interaction [Unknown]
  - Hepatic steatosis [Unknown]
  - Insulin resistance [Unknown]
  - Hepatic enzyme increased [Recovered/Resolved]
  - Off label use [Unknown]
